FAERS Safety Report 4288705-7 (Version None)
Quarter: 2004Q1

REPORT INFORMATION
  Report Type: 
  Country: None (occurrence: None)
  Receive Date: 20040205
  Receipt Date: 20040120
  Transmission Date: 20041129
  Serious: Yes (Disabling)
  Sender: FDA-Public Use
  Company Number: DE_040112812

PATIENT
  Age: 59 Year
  Sex: Male

DRUGS (1)
  1. GEMZAR [Suspect]
     Indication: BRONCHIAL CARCINOMA
     Dosage: 2000 MG/PER INFUSION
     Dates: start: 20030812, end: 20031216

REACTIONS (4)
  - CONDITION AGGRAVATED [None]
  - PARAESTHESIA [None]
  - PERIPHERAL SENSORY NEUROPATHY [None]
  - POLYNEUROPATHY [None]
